FAERS Safety Report 6735000-X (Version None)
Quarter: 2010Q2

REPORT INFORMATION
  Report Type: 
  Country: None (occurrence: None)
  Receive Date: 20100521
  Receipt Date: 20100512
  Transmission Date: 20101027
  Serious: Yes (Other)
  Sender: FDA-Public Use
  Company Number: DE-PFIZER INC-2010055713

PATIENT
  Sex: Male

DRUGS (5)
  1. ZELDOX [Suspect]
     Indication: PSYCHOTIC DISORDER
     Dosage: 80 MG, 2X/DAY
     Route: 048
     Dates: start: 20081101
  2. ZELDOX [Suspect]
     Indication: SCHIZOPHRENIA
     Dosage: 80MG DAILY
     Route: 048
  3. ZELDOX [Suspect]
     Dosage: 60MG DAILY
     Route: 048
  4. ATOSIL [Concomitant]
     Indication: PSYCHOTIC DISORDER
     Dosage: UNK
     Dates: start: 20081101
  5. ATOSIL [Concomitant]
     Indication: SCHIZOPHRENIA

REACTIONS (14)
  - APATHY [None]
  - DECREASED INTEREST [None]
  - FATIGUE [None]
  - GAIT DISTURBANCE [None]
  - HEART RATE INCREASED [None]
  - INCREASED APPETITE [None]
  - LIBIDO DECREASED [None]
  - NIGHTMARE [None]
  - PUPILLARY DISORDER [None]
  - RESTLESSNESS [None]
  - SLEEP DISORDER [None]
  - WEIGHT DECREASED [None]
  - WEIGHT INCREASED [None]
  - WITHDRAWAL SYNDROME [None]
